FAERS Safety Report 6369717-6 (Version None)
Quarter: 2009Q3

REPORT INFORMATION
  Report Type: 
  Country: None (occurrence: None)
  Receive Date: 20090923
  Receipt Date: 20090911
  Transmission Date: 20100115
  Serious: Yes (Other)
  Sender: FDA-Public Use
  Company Number: US-PFIZER INC-2009269267

PATIENT
  Sex: Female

DRUGS (5)
  1. PROVERA [Suspect]
     Indication: HORMONE REPLACEMENT THERAPY
     Dosage: 2.5 MG, UNK
     Route: 048
     Dates: start: 19910101, end: 19960701
  2. PREMARIN [Suspect]
     Indication: HORMONE REPLACEMENT THERAPY
     Dosage: 0.625 MG, UNK
     Dates: start: 19910101, end: 19960701
  3. PREMPRO [Suspect]
     Indication: HORMONE REPLACEMENT THERAPY
     Dosage: 2.5/0.625MG
     Dates: start: 19960801, end: 20000501
  4. TRIAMTERENE [Concomitant]
     Indication: HYPERTENSION
     Dosage: UNK
     Dates: start: 19990101
  5. CLONIDINE [Concomitant]
     Indication: HYPERTENSION
     Dosage: UNK
     Dates: start: 19990101

REACTIONS (1)
  - BREAST CANCER [None]
